FAERS Safety Report 8416176-5 (Version None)
Quarter: 2012Q2

REPORT INFORMATION
  Report Type: 
  Country: None (occurrence: None)
  Receive Date: 20120606
  Receipt Date: 20120606
  Transmission Date: 20120825
  Serious: Yes (Other)
  Sender: FDA-Public Use
  Company Number: PHHY2012AU014695

PATIENT
  Sex: Male

DRUGS (1)
  1. CLOZARIL [Suspect]
     Dosage: 375 MG
     Dates: start: 20111130

REACTIONS (4)
  - PYREXIA [None]
  - INFECTION [None]
  - FALL [None]
  - ILL-DEFINED DISORDER [None]
